FAERS Safety Report 4875370-0 (Version None)
Quarter: 2006Q1

REPORT INFORMATION
  Report Type: 
  Country: None (occurrence: None)
  Receive Date: 20060109
  Receipt Date: 20060103
  Transmission Date: 20060701
  Serious: Yes (Hospitalization)
  Sender: FDA-Public Use
  Company Number: US-MERCK-0601USA00214

PATIENT
  Sex: Female

DRUGS (3)
  1. VYTORIN [Suspect]
     Route: 048
     Dates: start: 20050914, end: 20051201
  2. AVAPRO [Concomitant]
     Route: 065
  3. HYDRODIURIL [Concomitant]
     Route: 048

REACTIONS (2)
  - HEPATITIS VIRAL [None]
  - LIVER FUNCTION TEST ABNORMAL [None]
